FAERS Safety Report 15772444 (Version 1)
Quarter: 2018Q4

REPORT INFORMATION
  Report Type: Report from Study
  Country: JP (occurrence: JP)
  Receive Date: 20181228
  Receipt Date: 20181228
  Transmission Date: 20190205
  Serious: Yes (Hospitalization)
  Sender: FDA-Public Use
  Company Number: JP-FERRINGPH-2017FE05020

PATIENT

DRUGS (9)
  1. URSO [Concomitant]
     Active Substance: URSODIOL
     Dosage: UNK
     Dates: start: 20160427
  2. KARY UNI                           /00528801/ [Concomitant]
     Active Substance: PIRENOXINE
     Dosage: UNK
     Dates: start: 201604
  3. NAFTOPIDIL [Concomitant]
     Active Substance: NAFTOPIDIL
     Dosage: UNK
     Dates: start: 20170517
  4. DEGARELIX [Suspect]
     Active Substance: DEGARELIX
     Indication: HORMONE-DEPENDENT PROSTATE CANCER
     Dosage: 80 MG, MONTHLY
     Route: 058
     Dates: start: 20170628
  5. DEGARELIX [Suspect]
     Active Substance: DEGARELIX
     Dosage: UNK
     Route: 058
     Dates: start: 20170531
  6. PLACEBO [Suspect]
     Active Substance: UNSPECIFIED INGREDIENT
     Indication: HORMONE-DEPENDENT PROSTATE CANCER
     Dosage: 4 DF, 1 TIME DAILY
     Route: 048
     Dates: start: 20170628
  7. EXCELASE [Concomitant]
     Active Substance: PANCRELIPASE
     Dosage: UNK
     Dates: start: 20160427
  8. CAMOSTAT MESILATE [Concomitant]
     Active Substance: CAMOSTAT MESYLATE
     Dosage: UNK
     Dates: start: 20160622
  9. CRESTOR [Concomitant]
     Active Substance: ROSUVASTATIN CALCIUM
     Dosage: UNK
     Dates: start: 20121128

REACTIONS (1)
  - Femoral neck fracture [Recovering/Resolving]

NARRATIVE: CASE EVENT DATE: 20171007
